FAERS Safety Report 24355961 (Version 1)
Quarter: 2024Q3

REPORT INFORMATION
  Report Type: Spontaneous
  Country: US (occurrence: US)
  Receive Date: 20240924
  Receipt Date: 20240924
  Transmission Date: 20241017
  Serious: Yes (Hospitalization, Other)
  Sender: SANDOZ
  Company Number: US-SANDOZ-SDZ2024US080825

PATIENT
  Age: 69 Year
  Sex: Male

DRUGS (3)
  1. ARSENIC TRIOXIDE [Suspect]
     Active Substance: ARSENIC TRIOXIDE
     Indication: Acute promyelocytic leukaemia
     Dosage: 0.15 MG/KG/DAY, FIVE DAYS A WEEK FOR FOUR WEEKS
     Route: 042
  2. TRETINOIN [Suspect]
     Active Substance: TRETINOIN
     Indication: Product used for unknown indication
     Dosage: 45 MG/M2, 45 MG/PER METER SQUARE OF BODY SURFACE AREA/DAY IV FOR TWO WEEKS
     Route: 042
  3. PREDNISONE [Suspect]
     Active Substance: PREDNISONE
     Indication: Differentiation syndrome
     Dosage: 60 MG
     Route: 065

REACTIONS (5)
  - Hallucination, visual [Recovered/Resolved]
  - Neurotoxicity [Unknown]
  - Vitreous floaters [Unknown]
  - Weight decreased [Unknown]
  - Photopsia [Unknown]
